FAERS Safety Report 4985167-9 (Version None)
Quarter: 2006Q1

REPORT INFORMATION
  Report Type: 
  Country: None (occurrence: None)
  Receive Date: 20060309
  Receipt Date: 20050614
  Transmission Date: 20060701
  Serious: Yes (Other)
  Sender: FDA-Public Use
  Company Number: 407890

PATIENT

DRUGS (2)
  1. ACCUTANE [Suspect]
     Indication: ACNE CYSTIC
     Dosage: ORAL
     Route: 048
     Dates: start: 20050314, end: 20050613
  2. ORTHO TRI CYCLEN (ETHINYL ESTRADIOL/NOREGESTIMATE) [Concomitant]

REACTIONS (2)
  - ABORTION INDUCED [None]
  - NO ADVERSE EFFECT [None]
